FAERS Safety Report 20425755 (Version 1)
Quarter: 2022Q1

REPORT INFORMATION
  Report Type: Report from Study
  Country: US (occurrence: US)
  Receive Date: 20220204
  Receipt Date: 20220204
  Transmission Date: 20220423
  Serious: No
  Sender: FDA-Public Use
  Company Number: US-EXELIXIS-CABO-21039804

PATIENT
  Sex: Female

DRUGS (1)
  1. COMETRIQ [Suspect]
     Active Substance: CABOZANTINIB S-MALATE
     Indication: Medullary thyroid cancer
     Dosage: 140 MG QD (1X80 MG AND 3X20 MG, QD)
     Route: 048
     Dates: start: 20210405

REACTIONS (5)
  - Pain in jaw [Unknown]
  - Ear pain [Unknown]
  - Dysphonia [Unknown]
  - Fatigue [Unknown]
  - Decreased appetite [Unknown]
